FAERS Safety Report 5951982-8 (Version None)
Quarter: 2008Q4

REPORT INFORMATION
  Report Type: 
  Country: None (occurrence: None)
  Receive Date: 20081113
  Receipt Date: 20071017
  Transmission Date: 20090506
  Serious: No
  Sender: FDA-Public Use
  Company Number: A0688255A

PATIENT
  Age: 75 Year
  Sex: Female

DRUGS (3)
  1. COREG [Suspect]
     Indication: HYPERTENSION
     Dosage: 25MG TWICE PER DAY
     Route: 048
     Dates: start: 20070201
  2. CLONIDINE [Concomitant]
  3. DIOVAN [Concomitant]

REACTIONS (2)
  - CHEST PAIN [None]
  - DRUG INEFFECTIVE [None]
